FAERS Safety Report 4947519-2 (Version None)
Quarter: 2006Q1

REPORT INFORMATION
  Report Type: 
  Country: None (occurrence: None)
  Receive Date: 20060313
  Receipt Date: 20060228
  Transmission Date: 20060701
  Serious: Yes (Other)
  Sender: FDA-Public Use
  Company Number: 2006032173

PATIENT
  Sex: Male
  Weight: 108.8633 kg

DRUGS (5)
  1. VIAGRA [Suspect]
     Indication: ERECTILE DYSFUNCTION
     Dosage: 50 MG (50 MG, AS NECESSARY)
  2. ZOCOR [Concomitant]
  3. ALL OTHER THERAPEUTIC PRODUCTS [Concomitant]
  4. ANALGESICS [Concomitant]
  5. VITAMINS [Concomitant]

REACTIONS (6)
  - ASTHENIA [None]
  - BALANCE DISORDER [None]
  - CEREBRAL CYST [None]
  - DRUG INEFFECTIVE [None]
  - POSTOPERATIVE INFECTION [None]
  - SURGICAL PROCEDURE REPEATED [None]
